FAERS Safety Report 7432069-4 (Version None)
Quarter: 2011Q2

REPORT INFORMATION
  Report Type: 
  Country: None (occurrence: None)
  Receive Date: 20110422
  Receipt Date: 20110408
  Transmission Date: 20111010
  Serious: Yes (Hospitalization)
  Sender: FDA-Public Use
  Company Number: FR-JNJFOC-20110403996

PATIENT
  Age: 77 Year
  Sex: Female

DRUGS (4)
  1. NOVATREX NOS [Suspect]
     Indication: RHEUMATOID ARTHRITIS
  2. REMICADE [Suspect]
     Indication: RHEUMATOID ARTHRITIS
     Route: 042
  3. PLAQUENIL [Suspect]
     Indication: RHEUMATOID ARTHRITIS
  4. IMUREL [Suspect]
     Indication: RHEUMATOID ARTHRITIS
     Route: 048

REACTIONS (1)
  - LIP AND/OR ORAL CAVITY CANCER [None]
